FAERS Safety Report 7630456 (Version 2)
Quarter: 2013Q3

REPORT INFORMATION
  Report Type: Spontaneous
  Country: US (occurrence: US)
  Receive Date: 20101015
  Receipt Date: 20130827
  Transmission Date: 20140515
  Serious: Yes (Hospitalization)
  Sender: FDA-Public Use
  Company Number: US-RANBAXY-2010US-38568

PATIENT
  Age: 37 Year
  Sex: Female

DRUGS (3)
  1. TOPIRAMATE [Suspect]
     Indication: BIPOLAR DISORDER
     Dosage: 100 MG, BID
     Route: 048
  2. DIAZEPAM [Concomitant]
     Indication: BIPOLAR DISORDER
     Dosage: UNK
     Route: 065
  3. IBUPROFEN [Concomitant]
     Indication: PRODUCT USED FOR UNKNOWN INDICATION
     Route: 065

REACTIONS (10)
  - Coma [Recovering/Resolving]
  - Metabolic acidosis [Not Recovered/Not Resolved]
  - Intentional overdose [Unknown]
  - Suicide attempt [Unknown]
  - Convulsion [Recovered/Resolved]
  - Dysarthria [Recovering/Resolving]
  - Ataxia [Recovering/Resolving]
  - Nystagmus [Recovering/Resolving]
  - Somnolence [Recovering/Resolving]
  - Drug level increased [Not Recovered/Not Resolved]
